FAERS Safety Report 8785616 (Version 1)
Quarter: 2012Q4

REPORT INFORMATION
  Report Type: Spontaneous
  Country: US (occurrence: None)
  Receive Date: 20120904
  Receipt Date: 20120904
  Transmission Date: 20130627
  Serious: Yes (Life-Threatening)
  Sender: FDA-Public Use
  Company Number: 100413-000219

PATIENT
  Age: 42 Year
  Sex: Female

DRUGS (7)
  1. PROACTIV RENEWING CLEANSER [Suspect]
     Indication: ACNE
     Dosage: Once daily dermal
     Dates: start: 20100309, end: 20100315
  2. PROACTIV REPAIRING TREATMENT [Suspect]
     Dosage: Once daily dermal
     Dates: start: 20100309, end: 20100315
  3. PROACTIV REFINING MASK [Suspect]
     Dosage: Once daily dermal
     Dates: start: 20100309, end: 20100315
  4. PROACTIV SPF 15 MOISTURIZER [Suspect]
     Dosage: Once daily dermal
     Dates: start: 20100309, end: 20100315
  5. ENALAPRIL [Concomitant]
  6. WELLBUTRIN [Concomitant]
  7. CENTRUM (MINERALS (UNSPECIFIED INGREDIENT) (+) VITAMINS (UNSPECIFIED INGREDIENT)) [Concomitant]

REACTIONS (8)
  - Paraesthesia [None]
  - Burning sensation [None]
  - Pruritus [None]
  - Erythema [None]
  - Swelling face [None]
  - Dyspnoea [None]
  - Palpitations [None]
  - Panic attack [None]
